FAERS Safety Report 6335829-6 (Version None)
Quarter: 2009Q3

REPORT INFORMATION
  Report Type: 
  Country: None (occurrence: None)
  Receive Date: 20090828
  Receipt Date: 20090821
  Transmission Date: 20100115
  Serious: Yes (Death)
  Sender: FDA-Public Use
  Company Number: CLOF-1000187

PATIENT
  Age: 73 Year

DRUGS (14)
  1. CLOFARABINE (CLOFARABINE) SOLUTION FOR INFUSION [Suspect]
     Indication: ACUTE MYELOID LEUKAEMIA
     Dosage: 20 MG/M2, QDX5, INTRAVENOUS
     Route: 042
     Dates: start: 20080320, end: 20080324
  2. DIGOXIN [Concomitant]
  3. FOLIC ACID [Concomitant]
  4. ACICLOVIR (ACICLOVIR SODIUM) [Concomitant]
  5. FUROSEMIDE (FUROSEMIDE SODIUM) [Concomitant]
  6. MEROPENEM (MEROPENEM) [Concomitant]
  7. PARACETAMOL (PROMETHAZINE HYDROCHLORIDE) [Concomitant]
  8. PIPERACILLIN SODIUM AND TAZOBACTAM SODIUM [Concomitant]
  9. POTASSIUM CHLORIDE [Concomitant]
  10. ITRACONAZOLE [Concomitant]
  11. CO-AMILOFRUSE (AMILORIDE HYDROCHLORIDE, FUROSEMIDE) [Concomitant]
  12. METOCLOPRAMIDE (METOCLOPRAMIDE HYDROCHLORIDE) [Concomitant]
  13. AMIKACIN SULFATE [Concomitant]
  14. CHLORHEXIDINE (CHLORHEXIDINE GLUCONATE) [Concomitant]

REACTIONS (2)
  - PNEUMONIA [None]
  - UNRESPONSIVE TO STIMULI [None]
